FAERS Safety Report 10077871 (Version 1)
Quarter: 2014Q2

REPORT INFORMATION
  Report Type: Spontaneous
  Country: GB (occurrence: GB)
  Receive Date: 20140414
  Receipt Date: 20140414
  Transmission Date: 20141212
  Serious: Yes (Death)
  Sender: FDA-Public Use
  Company Number: GB-BRISTOL-MYERS SQUIBB COMPANY-20608378

PATIENT
  Age: 7 Decade
  Sex: Female

DRUGS (1)
  1. ABATACEPT SUBQ INJECTION 125MG/ML [Suspect]
     Indication: RHEUMATOID ARTHRITIS
     Dosage: LAST DOSE:11MAR2014
     Route: 058
     Dates: start: 20140108, end: 20140311

REACTIONS (2)
  - Death [Fatal]
  - Injection site reaction [Recovered/Resolved]
